FAERS Safety Report 5959480-2 (Version None)
Quarter: 2008Q4

REPORT INFORMATION
  Report Type: 
  Country: None (occurrence: None)
  Receive Date: 20081120
  Receipt Date: 20081113
  Transmission Date: 20090506
  Serious: Yes (Hospitalization)
  Sender: FDA-Public Use
  Company Number: US-BIOGENIDEC-2008BI020109

PATIENT
  Age: 45 Year
  Sex: Female

DRUGS (1)
  1. AVONEX [Suspect]
     Indication: MULTIPLE SCLEROSIS
     Route: 030
     Dates: start: 20070415

REACTIONS (6)
  - DIABETES MELLITUS [None]
  - DYSPNOEA [None]
  - FATIGUE [None]
  - MULTIPLE SCLEROSIS [None]
  - PAIN [None]
  - PARAESTHESIA [None]
